FAERS Safety Report 7623291-2 (Version None)
Quarter: 2011Q3

REPORT INFORMATION
  Report Type: 
  Country: None (occurrence: None)
  Receive Date: 20110720
  Receipt Date: 20110712
  Transmission Date: 20111222
  Serious: Yes (Hospitalization, Congenital Anomaly, Other)
  Sender: FDA-Public Use
  Company Number: US-PFIZER INC-2011158626

PATIENT
  Sex: Female
  Weight: 3.3 kg

DRUGS (3)
  1. EFFEXOR XR [Suspect]
     Dosage: 75 MG THREE CAPSULES DAILY
     Route: 064
     Dates: start: 20040101
  2. EFFEXOR XR [Suspect]
     Dosage: 75 MG THREE CAPSULES IN THE MORNING
     Route: 064
     Dates: start: 20040101
  3. EFFEXOR XR [Suspect]
     Dosage: 150 MG, UNK
     Route: 064
     Dates: start: 20030101

REACTIONS (9)
  - DRUG WITHDRAWAL SYNDROME NEONATAL [None]
  - TRANSIENT TACHYPNOEA OF THE NEWBORN [None]
  - VENTRICULAR SEPTAL DEFECT [None]
  - POLYCYTHAEMIA [None]
  - MATERNAL EXPOSURE DURING PREGNANCY [None]
  - PATENT DUCTUS ARTERIOSUS [None]
  - COARCTATION OF THE AORTA [None]
  - ATRIAL SEPTAL DEFECT [None]
  - JAUNDICE NEONATAL [None]
